FAERS Safety Report 13386043 (Version 5)
Quarter: 2017Q2

REPORT INFORMATION
  Report Type: Report from Study
  Country: CN (occurrence: CN)
  Receive Date: 20170330
  Receipt Date: 20170524
  Transmission Date: 20170830
  Serious: Yes (Hospitalization)
  Sender: FDA-Public Use
  Company Number: CN-ROCHE-1913237

PATIENT
  Age: 70 Year
  Sex: Male
  Weight: 56 kg

DRUGS (5)
  1. AMBROXOL HYDROCHLORIDE [Concomitant]
     Active Substance: AMBROXOL HYDROCHLORIDE
     Indication: PRODUCTIVE COUGH
     Route: 065
     Dates: start: 20170327, end: 20170404
  2. FUROSEMIDE. [Concomitant]
     Active Substance: FUROSEMIDE
     Indication: PROPHYLAXIS
     Route: 065
     Dates: start: 20170327, end: 20170330
  3. CEFMETAZOLE SODIUM [Concomitant]
     Active Substance: CEFMETAZOLE SODIUM
     Indication: INFECTION PROPHYLAXIS
     Route: 065
     Dates: start: 20170327, end: 20170405
  4. LANSOPRAZOLE. [Concomitant]
     Active Substance: LANSOPRAZOLE
     Indication: PROPHYLAXIS OF NAUSEA AND VOMITING
     Route: 065
     Dates: start: 20170327, end: 20170404
  5. ATEZOLIZUMAB [Suspect]
     Active Substance: ATEZOLIZUMAB
     Indication: NON-SMALL CELL LUNG CANCER
     Dosage: DATE OF MOST RECENT DOSE, 10/MAR/2017
     Route: 042
     Dates: start: 20170216

REACTIONS (1)
  - Tachypnoea [Recovered/Resolved with Sequelae]

NARRATIVE: CASE EVENT DATE: 20170325
